FAERS Safety Report 11057086 (Version 4)
Quarter: 2015Q3

REPORT INFORMATION
  Report Type: Spontaneous
  Country: FR (occurrence: FR)
  Receive Date: 20150422
  Receipt Date: 20150923
  Transmission Date: 20151125
  Serious: Yes (Hospitalization)
  Sender: FDA-Public Use
  Company Number: FR-PFIZER INC-2015132205

PATIENT
  Age: 41 Year
  Sex: Female

DRUGS (13)
  1. ZELITREX [Concomitant]
     Active Substance: VALACYCLOVIR HYDROCHLORIDE
     Dosage: 500 MG, 2X/DAY
     Route: 048
  2. EMEND [Concomitant]
     Active Substance: APREPITANT
     Dosage: 80 MG, 3X/DAY
     Route: 048
     Dates: start: 20150327, end: 20150331
  3. MABTHERA [Concomitant]
     Active Substance: RITUXIMAB
     Indication: B-CELL LYMPHOMA
     Dosage: ONE ADMINISTRATION OF 695 MG BY CYCLE (ON DAY 1)
     Route: 042
     Dates: start: 20150304
  4. DEXAMETHASONE. [Concomitant]
     Active Substance: DEXAMETHASONE
     Indication: B-CELL LYMPHOMA
     Dosage: 40 MG DAILY FROM DAY 1 TO 4 (CYCLIC)
     Route: 048
     Dates: start: 20150304, end: 2015
  5. ALLOPURINOL. [Concomitant]
     Active Substance: ALLOPURINOL
     Dosage: 300 MG, DAILY
     Route: 048
  6. NEUPOGEN [Concomitant]
     Active Substance: FILGRASTIM
     Dosage: UNK
  7. SOLU-MEDROL [Concomitant]
     Active Substance: METHYLPREDNISOLONE SODIUM SUCCINATE
     Indication: B-CELL LYMPHOMA
     Dosage: ONE ADMINISTRATION OF 40 MG BY CYCLE (ON DAY 1)
     Route: 042
     Dates: start: 20150304
  8. OXALIPLATINE HOSPIRA [Suspect]
     Active Substance: OXALIPLATIN
     Indication: B-CELL LYMPHOMA
     Dosage: ONE ADMINISTRATION OF 241 MG BY CYCLE (ON DAY 1)
     Route: 042
     Dates: start: 20150304, end: 2015
  9. BACTRIM [Concomitant]
     Active Substance: SULFAMETHOXAZOLE\TRIMETHOPRIM
     Dosage: 1 TABLET THRICE WEEKLY
     Route: 048
  10. PARACETAMOL [Concomitant]
     Active Substance: ACETAMINOPHEN
     Dosage: UNK
  11. CYTARABINE. [Concomitant]
     Active Substance: CYTARABINE
     Indication: B-CELL LYMPHOMA
     Dosage: ONE ADMINISTRATION OF 3.7 G BY CYCLE (ON DAY 2)
     Route: 042
     Dates: start: 20150305, end: 2015
  12. INNOHEP [Concomitant]
     Active Substance: TINZAPARIN SODIUM
     Dosage: 12000 IU, DAILY
     Route: 058
     Dates: start: 2014
  13. ZOPHREN [Concomitant]
     Active Substance: ONDANSETRON
     Dosage: 8 MG, 2X/DAY
     Route: 048
     Dates: start: 20150327, end: 20150331

REACTIONS (7)
  - Nausea [Unknown]
  - Headache [Unknown]
  - Arthralgia [Unknown]
  - Asthenia [Unknown]
  - Hepatocellular injury [Recovered/Resolved]
  - Vomiting [Unknown]
  - Neuropathy peripheral [Unknown]

NARRATIVE: CASE EVENT DATE: 201503
